FAERS Safety Report 8092491-2 (Version None)
Quarter: 2012Q1

REPORT INFORMATION
  Report Type: 
  Country: None (occurrence: None)
  Receive Date: 20120125
  Receipt Date: 20120116
  Transmission Date: 20120608
  Serious: Yes (Hospitalization, Other)
  Sender: FDA-Public Use
  Company Number: AUR-APL-2012-00612

PATIENT
  Age: 38 Year
  Sex: Female

DRUGS (3)
  1. RANITIDINE HYDROCHLORIDE [Suspect]
     Indication: PRODUCT USED FOR UNKNOWN INDICATION
     Dosage: (150 MG,1 D)
  2. HYDROXYCITRIC ACID DIETARY SUPPLEMENT (HYDROXYCITRIC ACID) [Suspect]
     Indication: PRODUCT USED FOR UNKNOWN INDICATION
     Dosage: (500 MG,1 D)
  3. HYDROCODONE/ACETAMINOPHEN (PROCET) [Concomitant]

REACTIONS (8)
  - ABDOMINAL PAIN [None]
  - NAUSEA [None]
  - VOMITING [None]
  - HYPERTENSION [None]
  - RENAL FAILURE ACUTE [None]
  - NEPHROPATHY [None]
  - HAEMODIALYSIS [None]
  - HERBAL TOXICITY [None]
